FAERS Safety Report 22648534 (Version 4)
Quarter: 2023Q4

REPORT INFORMATION
  Report Type: Spontaneous
  Country: AT (occurrence: AT)
  Receive Date: 20230628
  Receipt Date: 20231212
  Transmission Date: 20240110
  Serious: Yes (Other)
  Sender: FDA-Public Use
  Company Number: AT-CELLTRION INC.-2023AT012776

PATIENT

DRUGS (4)
  1. RITUXIMAB [Suspect]
     Active Substance: RITUXIMAB
     Indication: Follicular lymphoma
     Dosage: UNK
     Route: 065
  2. LENALIDOMIDE [Suspect]
     Active Substance: LENALIDOMIDE
     Indication: Follicular lymphoma
     Dosage: UNK
     Route: 065
  3. LUNSUMIO [Suspect]
     Active Substance: MOSUNETUZUMAB-AXGB
     Indication: Follicular lymphoma
     Dosage: UNK
     Route: 065
  4. ZYDELIG [Concomitant]
     Active Substance: IDELALISIB

REACTIONS (5)
  - Deep vein thrombosis [Unknown]
  - Effusion [Unknown]
  - Disease progression [Unknown]
  - Cytokine release syndrome [Unknown]
  - Blood disorder [Unknown]

NARRATIVE: CASE EVENT DATE: 20230601
